FAERS Safety Report 18817061 (Version 1)
Quarter: 2021Q1

REPORT INFORMATION
  Report Type: Spontaneous
  Country: JP (occurrence: JP)
  Receive Date: 20210201
  Receipt Date: 20210201
  Transmission Date: 20210419
  Serious: Yes (Hospitalization)
  Sender: FDA-Public Use
  Company Number: JP-ACELLA PHARMACEUTICALS, LLC-2106104

PATIENT
  Age: 6 Year
  Sex: Female

DRUGS (12)
  1. VALPROIC ACID. [Suspect]
     Active Substance: VALPROIC ACID
     Route: 048
  2. POTASSIUM BROMIDE [Suspect]
     Active Substance: POTASSIUM BROMIDE
     Route: 048
  3. CLONAZEPAM. [Suspect]
     Active Substance: CLONAZEPAM
     Route: 048
  4. LAMOTRIGINE. [Suspect]
     Active Substance: LAMOTRIGINE
     Route: 048
  5. PHENYTOIN SODIUM. [Suspect]
     Active Substance: PHENYTOIN SODIUM
     Indication: EPILEPSY
     Route: 048
  6. PHENOBARBITAL. [Suspect]
     Active Substance: PHENOBARBITAL
     Route: 048
  7. THIOPENTAL SODIUM. [Suspect]
     Active Substance: THIOPENTAL SODIUM
     Route: 042
  8. GABAPENTIN. [Suspect]
     Active Substance: GABAPENTIN
     Route: 065
  9. MIDAZOLAM. [Suspect]
     Active Substance: MIDAZOLAM
     Route: 065
  10. LACOSAMIDE. [Suspect]
     Active Substance: LACOSAMIDE
     Route: 048
  11. PERAMPANEL [Suspect]
     Active Substance: PERAMPANEL
     Route: 048
  12. GABAPENTIN. [Suspect]
     Active Substance: GABAPENTIN
     Route: 065

REACTIONS (17)
  - Seizure [Unknown]
  - Heart rate increased [Unknown]
  - Alanine aminotransferase increased [Unknown]
  - Vomiting [Unknown]
  - Muscle disorder [Unknown]
  - Aspartate aminotransferase increased [Unknown]
  - Paroxysmal sympathetic hyperactivity [Unknown]
  - Hyponatraemia [Unknown]
  - Eye disorder [Unknown]
  - Pyrexia [Unknown]
  - Ammonia increased [Unknown]
  - Hyperammonaemia [Recovered/Resolved]
  - Inappropriate antidiuretic hormone secretion [Unknown]
  - Flushing [Unknown]
  - Mydriasis [Unknown]
  - Drug-induced liver injury [Recovered/Resolved]
  - Gamma-glutamyltransferase increased [Unknown]
